FAERS Safety Report 23853769 (Version 1)
Quarter: 2024Q2

REPORT INFORMATION
  Report Type: Spontaneous
  Country: US (occurrence: None)
  Receive Date: 20240513
  Receipt Date: 20240513
  Transmission Date: 20240716
  Serious: Yes (Other)
  Sender: FDA-Public Use
  Company Number: None

PATIENT
  Age: 32 Year
  Sex: Female
  Weight: 58.5 kg

DRUGS (2)
  1. BUPROPION HYDROCHLORIDE [Suspect]
     Active Substance: BUPROPION HYDROCHLORIDE
     Indication: Major depression
     Dates: start: 20200818
  2. DAILY MULTIVITAMIN [Concomitant]

REACTIONS (3)
  - Drug ineffective [None]
  - Staring [None]
  - Feeling abnormal [None]

NARRATIVE: CASE EVENT DATE: 20200818
